FAERS Safety Report 18264204 (Version 1)
Quarter: 2020Q3

REPORT INFORMATION
  Report Type: Spontaneous
  Country: US (occurrence: US)
  Receive Date: 20200914
  Receipt Date: 20200914
  Transmission Date: 20201103
  Serious: No
  Sender: FDA-Public Use
  Company Number: US-ASTRAZENECA-2020SF11109

PATIENT
  Age: 29021 Day
  Sex: Male

DRUGS (14)
  1. FASENRA [Suspect]
     Active Substance: BENRALIZUMAB
     Indication: ASTHMA
     Route: 058
     Dates: start: 20200720
  2. ZYRTEC [Concomitant]
     Active Substance: CETIRIZINE HYDROCHLORIDE
  3. GLUCOSAMINE [Concomitant]
     Active Substance: GLUCOSAMINE
  4. AZELASTINE NASAL SPRAY [Concomitant]
     Active Substance: AZELASTINE
     Route: 045
  5. DILTIAZEM. [Concomitant]
     Active Substance: DILTIAZEM
  6. MONTELUKAST [Concomitant]
     Active Substance: MONTELUKAST SODIUM
  7. CRESTOR [Suspect]
     Active Substance: ROSUVASTATIN CALCIUM
     Dosage: UNKNOWN
     Route: 048
  8. FLUOXETINE [Concomitant]
     Active Substance: FLUOXETINE HYDROCHLORIDE
  9. ALBUTEROL. [Concomitant]
     Active Substance: ALBUTEROL
     Indication: ILL-DEFINED DISORDER
     Route: 055
     Dates: start: 20200821
  10. THEOPHYLLINE [Concomitant]
     Active Substance: THEOPHYLLINE ANHYDROUS
  11. ASPIRIN. [Concomitant]
     Active Substance: ASPIRIN
  12. PREDNISONE. [Concomitant]
     Active Substance: PREDNISONE
     Indication: ILL-DEFINED DISORDER
     Route: 048
     Dates: start: 20200825
  13. SYMBICORT [Suspect]
     Active Substance: BUDESONIDE\FORMOTEROL FUMARATE DIHYDRATE
     Indication: ASTHMA
     Dosage: 160/4.5 MCG INHALER, TWO PUFFS TWICE A DAY
     Route: 055
  14. CLONAZEPAM. [Concomitant]
     Active Substance: CLONAZEPAM

REACTIONS (3)
  - Dyspnoea [Recovering/Resolving]
  - Eosinophil count increased [Unknown]
  - Chest discomfort [Recovering/Resolving]

NARRATIVE: CASE EVENT DATE: 20200821
